FAERS Safety Report 7877069-5 (Version None)
Quarter: 2011Q4

REPORT INFORMATION
  Report Type: 
  Country: None (occurrence: None)
  Receive Date: 20111031
  Receipt Date: 20111026
  Transmission Date: 20120403
  Serious: Yes (Death, Other)
  Sender: FDA-Public Use
  Company Number: PHHY2011US94269

PATIENT
  Age: 31 Year
  Sex: Female

DRUGS (2)
  1. ZONISAMIDE [Suspect]
     Indication: MIGRAINE
     Dosage: UNK
  2. SULFAMETHOXAZOLE AND TRIMETHOPRIM [Suspect]
     Indication: RESPIRATORY TRACT INFECTION
     Dosage: UNK

REACTIONS (17)
  - EJECTION FRACTION DECREASED [None]
  - LYMPHADENOPATHY [None]
  - PERICARDIAL EFFUSION [None]
  - HEPATITIS [None]
  - EOSINOPHILIC MYOCARDITIS [None]
  - LEFT VENTRICULAR DYSFUNCTION [None]
  - CARDIAC ARREST [None]
  - LEUKOCYTOSIS [None]
  - CARDIAC TAMPONADE [None]
  - FACE OEDEMA [None]
  - EOSINOPHILIA [None]
  - RENAL FAILURE ACUTE [None]
  - DRUG RASH WITH EOSINOPHILIA AND SYSTEMIC SYMPTOMS [None]
  - PYREXIA [None]
  - RASH MORBILLIFORM [None]
  - RASH [None]
  - HYPOTENSION [None]
